FAERS Safety Report 7390147-2 (Version None)
Quarter: 2011Q2

REPORT INFORMATION
  Report Type: 
  Country: None (occurrence: None)
  Receive Date: 20110401
  Receipt Date: 20110321
  Transmission Date: 20111010
  Serious: Yes (Other)
  Sender: FDA-Public Use
  Company Number: PHHY2011US07864

PATIENT
  Sex: Male
  Weight: 79.365 kg

DRUGS (19)
  1. ASCORBIC ACID [Concomitant]
     Dosage: UNK
  2. MULTI-VITAMIN [Concomitant]
     Dosage: UNK
  3. LORATADINE [Concomitant]
     Dosage: UNK
  4. TRAZODONE HCL [Concomitant]
     Dosage: UNK
  5. PROVIGIL [Concomitant]
     Dosage: UNK
  6. BACLOFEN [Concomitant]
     Dosage: UNK
  7. OXYCODONE [Concomitant]
     Dosage: UNK
  8. GILENYA [Suspect]
     Indication: MULTIPLE SCLEROSIS RELAPSE
     Dosage: 0.5 MG, QD
     Route: 048
     Dates: start: 20110126
  9. FENTANYL [Concomitant]
     Dosage: UNK
  10. DETROL [Concomitant]
     Dosage: UNK
  11. ACYCLOVIR [Concomitant]
     Dosage: UNK
  12. CYCLOBENZAPRINE [Concomitant]
     Dosage: UNK
  13. VITAMIN B-12 [Concomitant]
     Dosage: UNK
  14. DOCUSATE [Concomitant]
     Dosage: UNK
  15. LORAZEPAM [Concomitant]
     Dosage: UNK
  16. VALIUM [Concomitant]
     Dosage: UNK
  17. GILENYA [Suspect]
     Dosage: 0.5 MG, QD
     Route: 048
     Dates: start: 20110127
  18. LEVOTHYROXINE SODIUM [Concomitant]
     Dosage: UNK
  19. CITALOPRAM HYDROBROMIDE [Concomitant]
     Dosage: UNK

REACTIONS (7)
  - HALLUCINATION [None]
  - OROPHARYNGEAL PAIN [None]
  - FEELING OF BODY TEMPERATURE CHANGE [None]
  - VIRAL INFECTION [None]
  - INFLUENZA LIKE ILLNESS [None]
  - PYREXIA [None]
  - VOMITING [None]
